FAERS Safety Report 19978370 (Version 1)
Quarter: 2021Q4

REPORT INFORMATION
  Report Type: Spontaneous
  Country: US (occurrence: US)
  Receive Date: 20211020
  Receipt Date: 20211020
  Transmission Date: 20220303
  Serious: No
  Sender: FDA-Public Use
  Company Number: None

PATIENT
  Age: 59 Year
  Sex: Female
  Weight: 60 kg

DRUGS (1)
  1. ENOXAPARIN [Suspect]
     Active Substance: ENOXAPARIN
     Indication: Deep vein thrombosis
     Route: 058
     Dates: start: 20210802, end: 20210809

REACTIONS (3)
  - Heparin-induced thrombocytopenia [None]
  - Respiratory failure [None]
  - COVID-19 [None]

NARRATIVE: CASE EVENT DATE: 20210809
